FAERS Safety Report 18224055 (Version 1)
Quarter: 2020Q3

REPORT INFORMATION
  Report Type: Spontaneous
  Country: ES (occurrence: ES)
  Receive Date: 20200902
  Receipt Date: 20200902
  Transmission Date: 20201103
  Serious: Yes (Other)
  Sender: FDA-Public Use
  Company Number: NVSC2020ES241177

PATIENT
  Age: 18 Year
  Sex: Male

DRUGS (2)
  1. METAMIZOLE [Suspect]
     Active Substance: METAMIZOLE
     Indication: APPENDICITIS
     Dosage: UNK
     Route: 065
  2. AMOXICILLIN, CLAVULANIC ACID [Suspect]
     Active Substance: AMOXICILLIN\CLAVULANIC ACID
     Indication: APPENDICITIS
     Dosage: UNK, 500/125 MG (CUMULATIVE DOSE, AMOXICILLIN 875 MG/CLAVULANIC ACID 218.75 MG)
     Route: 065

REACTIONS (11)
  - Diarrhoea [Not Recovered/Not Resolved]
  - Abdominal pain [Recovering/Resolving]
  - Pallor [Recovering/Resolving]
  - Nausea [Recovered/Resolved]
  - Dizziness [Recovered/Resolved]
  - Product use in unapproved indication [Unknown]
  - Vomiting [Recovered/Resolved]
  - Vomiting [Recovering/Resolving]
  - Enterocolitis [Unknown]
  - Abdominal pain upper [Recovered/Resolved]
  - Nausea [Recovering/Resolving]
